FAERS Safety Report 21067081 (Version 1)
Quarter: 2022Q3

REPORT INFORMATION
  Report Type: Spontaneous
  Country: GB (occurrence: GB)
  Receive Date: 20220712
  Receipt Date: 20220712
  Transmission Date: 20221027
  Serious: Yes (Other)
  Sender: FDA-Public Use
  Company Number: None

PATIENT
  Age: 39 Year
  Sex: Female
  Weight: 93 kg

DRUGS (5)
  1. XARELTO [Suspect]
     Active Substance: RIVAROXABAN
     Indication: Superficial vein thrombosis
     Dosage: 20 MG
     Route: 048
     Dates: start: 20220623, end: 20220707
  2. XARELTO [Suspect]
     Active Substance: RIVAROXABAN
     Indication: Superficial vein thrombosis
     Dosage: UNK
     Route: 048
     Dates: start: 20220623, end: 20220707
  3. XARELTO [Suspect]
     Active Substance: RIVAROXABAN
     Indication: Superficial vein thrombosis
     Dosage: UNK
     Route: 048
     Dates: start: 20220623, end: 20220707
  4. XARELTO [Suspect]
     Active Substance: RIVAROXABAN
     Indication: Superficial vein thrombosis
     Dosage: UNK
     Route: 048
     Dates: start: 20220623, end: 20220707
  5. APIXABAN [Concomitant]
     Active Substance: APIXABAN
     Indication: Superficial vein thrombosis
     Dates: start: 20220701

REACTIONS (1)
  - Adverse drug reaction [Recovered/Resolved]

NARRATIVE: CASE EVENT DATE: 20220623
